FAERS Safety Report 17881522 (Version 2)
Quarter: 2020Q3

REPORT INFORMATION
  Report Type: Spontaneous
  Country: CN (occurrence: CN)
  Receive Date: 20200610
  Receipt Date: 20200619
  Transmission Date: 20201105
  Serious: Yes (Life-Threatening)
  Sender: FDA-Public Use
  Company Number: CN-CELGENEUS-CHN-20200601763

PATIENT
  Age: 70 Year
  Sex: Male
  Weight: 62 kg

DRUGS (25)
  1. ABRAXANE [Suspect]
     Active Substance: PACLITAXEL
     Dosage: 166.5 MILLIGRAM
     Route: 041
     Dates: start: 20200529, end: 20200529
  2. CARBOPLATIN. [Suspect]
     Active Substance: CARBOPLATIN
     Indication: SQUAMOUS CELL CARCINOMA OF LUNG
     Dosage: 629.4 MILLIGRAM
     Route: 041
     Dates: start: 20200305, end: 20200305
  3. CARBOPLATIN. [Suspect]
     Active Substance: CARBOPLATIN
     Dosage: 425.6 MILLIGRAM
     Route: 041
     Dates: start: 20200410, end: 20200410
  4. SERPLULIMAB. [Suspect]
     Active Substance: SERPLULIMAB
     Indication: SQUAMOUS CELL CARCINOMA OF LUNG
     Dosage: 288 MILLIGRAM
     Route: 041
     Dates: start: 20200305, end: 20200305
  5. ABRAXANE [Suspect]
     Active Substance: PACLITAXEL
     Indication: SQUAMOUS CELL CARCINOMA OF LUNG
     Dosage: 169.2 MILLIGRAM
     Route: 041
     Dates: start: 20200305, end: 20200305
  6. ABRAXANE [Suspect]
     Active Substance: PACLITAXEL
     Dosage: 167.9 MILLIGRAM
     Route: 041
     Dates: start: 20200312, end: 20200319
  7. ABRAXANE [Suspect]
     Active Substance: PACLITAXEL
     Dosage: 166.5 MILLIGRAM
     Route: 041
     Dates: start: 20200514, end: 20200514
  8. CARBOPLATIN. [Suspect]
     Active Substance: CARBOPLATIN
     Dosage: 483.5 MILLIGRAM
     Route: 041
     Dates: start: 20200430, end: 20200430
  9. LANSOPRAZOLE. [Concomitant]
     Active Substance: LANSOPRAZOLE
     Indication: PROPHYLAXIS
  10. ABRAXANE [Suspect]
     Active Substance: PACLITAXEL
     Dosage: 167.9 MILLIGRAM
     Route: 041
     Dates: start: 20200430, end: 20200430
  11. CARBOPLATIN. [Suspect]
     Active Substance: CARBOPLATIN
     Dosage: 471.8 MILLIGRAM
     Route: 041
     Dates: start: 20200522, end: 20200522
  12. TROPISETRON HYDROCHLORIDE [Concomitant]
     Active Substance: TROPISETRON HYDROCHLORIDE
     Indication: PROPHYLAXIS OF NAUSEA AND VOMITING
     Route: 041
     Dates: start: 20200529
  13. ABRAXANE [Suspect]
     Active Substance: PACLITAXEL
     Dosage: 167.9 MILLIGRAM
     Route: 041
     Dates: start: 20200522, end: 20200522
  14. METOCLOPRAMIDE DIHYDROCHLORIDE [Concomitant]
     Indication: INHIBITORY DRUG INTERACTION
     Route: 030
     Dates: start: 20200529
  15. MONTMORILLONITE POWDER [Concomitant]
     Indication: PROPHYLAXIS AGAINST DIARRHOEA
     Dosage: 9 GRAM
     Route: 048
     Dates: start: 20200529, end: 20200601
  16. ACUPOINT [Concomitant]
     Indication: PROPHYLAXIS OF NAUSEA AND VOMITING
     Route: 061
     Dates: start: 20200529, end: 20200530
  17. SERPLULIMAB. [Suspect]
     Active Substance: SERPLULIMAB
     Dosage: 288 MILLIGRAM
     Route: 041
     Dates: start: 20200410, end: 20200410
  18. VITAMIN C [Concomitant]
     Active Substance: ASCORBIC ACID
     Indication: NUTRITIONAL SUPPLEMENTATION
     Dosage: 3 GRAM
     Route: 041
     Dates: start: 20200530
  19. ABRAXANE [Suspect]
     Active Substance: PACLITAXEL
     Dosage: 167.9 MILLIGRAM
     Route: 041
     Dates: start: 20200410, end: 20200417
  20. LOPERAMIDE HYDROCHLORIDE. [Concomitant]
     Active Substance: LOPERAMIDE HYDROCHLORIDE
     Indication: PROPHYLAXIS AGAINST DIARRHOEA
     Dosage: 6 MILLIGRAM
     Route: 048
     Dates: start: 20200529, end: 20200601
  21. AMINOPHENAZONE BARBITAL [Concomitant]
     Active Substance: AMINOPHENAZONE BARBITAL
     Indication: PYREXIA
     Route: 030
     Dates: start: 20200529, end: 20200531
  22. SERPLULIMAB. [Suspect]
     Active Substance: SERPLULIMAB
     Dosage: 288 MILLIGRAM
     Route: 041
     Dates: start: 20200430, end: 20200430
  23. SERPLULIMAB. [Suspect]
     Active Substance: SERPLULIMAB
     Dosage: 288 MILLIGRAM
     Route: 041
     Dates: start: 20200522, end: 20200522
  24. LANSOPRAZOLE. [Concomitant]
     Active Substance: LANSOPRAZOLE
     Indication: PROPHYLAXIS
     Dosage: 30 MILLIGRAM
     Route: 041
     Dates: start: 20200529
  25. VITAMIN B6 [Concomitant]
     Active Substance: PYRIDOXINE HYDROCHLORIDE
     Indication: NUTRITIONAL SUPPLEMENTATION
     Dosage: 200 MILLIGRAM
     Route: 041
     Dates: start: 20200530

REACTIONS (1)
  - Neutropenia [Recovered/Resolved]

NARRATIVE: CASE EVENT DATE: 20200601
